FAERS Safety Report 17717849 (Version 23)
Quarter: 2024Q3

REPORT INFORMATION
  Report Type: Report from Study
  Country: CO (occurrence: CO)
  Receive Date: 20200428
  Receipt Date: 20240705
  Transmission Date: 20241016
  Serious: Yes (Life-Threatening, Hospitalization)
  Sender: NOVARTIS
  Company Number: NVSC2019CO054686

PATIENT
  Age: 6 Year
  Sex: Female

DRUGS (8)
  1. ELTROMBOPAG OLAMINE [Suspect]
     Active Substance: ELTROMBOPAG OLAMINE
     Indication: Immune thrombocytopenia
     Dosage: 25 MG, QD
     Route: 048
     Dates: start: 20190606
  2. ELTROMBOPAG OLAMINE [Suspect]
     Active Substance: ELTROMBOPAG OLAMINE
     Dosage: 25 MG, QD
     Route: 048
     Dates: start: 20191127
  3. ELTROMBOPAG OLAMINE [Suspect]
     Active Substance: ELTROMBOPAG OLAMINE
     Dosage: 25 MG, QD
     Route: 048
  4. ELTROMBOPAG OLAMINE [Suspect]
     Active Substance: ELTROMBOPAG OLAMINE
     Dosage: 50 MG, QD
     Route: 048
  5. ELTROMBOPAG OLAMINE [Suspect]
     Active Substance: ELTROMBOPAG OLAMINE
     Dosage: UNK, QD
     Route: 048
  6. ALBUTEROL [Suspect]
     Active Substance: ALBUTEROL
     Indication: Asthma
     Dosage: UNK, Q8H
     Route: 048
  7. DEXAMETHASONE [Concomitant]
     Active Substance: DEXAMETHASONE
     Indication: Asthma
     Dosage: UNK, Q12H
     Route: 048
  8. VIT-C [Concomitant]
     Indication: Decreased immune responsiveness
     Dosage: UNK, QD
     Route: 048

REACTIONS (15)
  - Pneumonia [Recovered/Resolved]
  - Feeling of despair [Recovered/Resolved]
  - Petechiae [Recovered/Resolved]
  - Haemoglobin decreased [Recovered/Resolved]
  - Feeling abnormal [Unknown]
  - Illness [Unknown]
  - Platelet count decreased [Recovered/Resolved]
  - Dehydration [Unknown]
  - Pigmentation disorder [Unknown]
  - Contusion [Unknown]
  - Vomiting [Unknown]
  - Pyrexia [Unknown]
  - Product supply issue [Unknown]
  - Eye haemorrhage [Recovered/Resolved]
  - Viral infection [Recovered/Resolved]

NARRATIVE: CASE EVENT DATE: 20190706
